FAERS Safety Report 23626461 (Version 2)
Quarter: 2024Q1

REPORT INFORMATION
  Report Type: Spontaneous
  Country: US (occurrence: US)
  Receive Date: 20240313
  Receipt Date: 20240327
  Transmission Date: 20240410
  Serious: No
  Sender: FDA-Public Use
  Company Number: US-HALEON-USCH2024012588

PATIENT

DRUGS (2)
  1. TRANSDERM SCOP [Suspect]
     Active Substance: SCOPOLAMINE
     Indication: Product used for unknown indication
     Dosage: (DOSAGE TEXT: UNK)
     Route: 065
  2. NICODERM CQ [Suspect]
     Active Substance: NICOTINE
     Indication: Product used for unknown indication
     Dosage: (DOSAGE TEXT: UNK) (NICODERM CQ CLEAR 21 MG)
     Route: 065

REACTIONS (1)
  - Pruritus [Unknown]
